FAERS Safety Report 11485342 (Version 1)
Quarter: 2015Q3

REPORT INFORMATION
  Report Type: Spontaneous
  Country: JP (occurrence: JP)
  Receive Date: 20150909
  Receipt Date: 20150909
  Transmission Date: 20151125
  Serious: Yes (Hospitalization)
  Sender: FDA-Public Use
  Company Number: JP-GLAXOSMITHKLINE-JP2015JPN075631

PATIENT
  Age: 69 Year
  Sex: Male
  Weight: 55 kg

DRUGS (14)
  1. MEPTIN AIR [Concomitant]
     Active Substance: PROCATEROL HYDROCHLORIDE
     Dosage: UNK
  2. VALTREX [Suspect]
     Active Substance: VALACYCLOVIR HYDROCHLORIDE
     Indication: HERPES ZOSTER
     Dosage: 500 MG, BID
     Route: 048
     Dates: start: 20150527, end: 20150530
  3. FLUMARIN (JAPAN) [Concomitant]
     Dosage: UNK
     Dates: start: 20150515, end: 20150529
  4. CELESTAMINE [Concomitant]
     Active Substance: BETAMETHASONE\DEXCHLORPHENIRAMINE MALEATE
     Dosage: UNK, PRN
  5. NASONEX [Concomitant]
     Active Substance: MOMETASONE FUROATE
     Dosage: UNK
  6. REMICUT [Concomitant]
     Dosage: UNK
  7. LIVALO [Concomitant]
     Active Substance: PITAVASTATIN CALCIUM
     Dosage: UNK
  8. OZEX [Suspect]
     Active Substance: TOSUFLOXACIN TOSYLATE
     Indication: PROSTATITIS
     Dosage: 150 MG, TID
     Route: 048
     Dates: start: 20150515, end: 20150528
  9. SOLANTAL [Suspect]
     Active Substance: TIARAMIDE
     Indication: PYREXIA
     Dosage: 100 MG, PRN
     Route: 048
     Dates: start: 20150527, end: 20150530
  10. URIEF [Concomitant]
     Active Substance: SILODOSIN
     Dosage: UNK
  11. NEUER [Concomitant]
     Active Substance: CETRAXATE HYDROCHLORIDE
     Dosage: UNK
  12. MUCODYNE [Concomitant]
     Active Substance: CARBOCYSTEINE
     Dosage: UNK
  13. BEZATOL SR [Concomitant]
     Active Substance: BEZAFIBRATE
     Dosage: UNK
  14. TRAMAZOLINE [Concomitant]
     Active Substance: TRAMAZOLINE
     Dosage: UNK

REACTIONS (15)
  - Oral mucosal erythema [Recovering/Resolving]
  - Hepatic function abnormal [Recovering/Resolving]
  - Pyrexia [Recovering/Resolving]
  - Scab [Recovering/Resolving]
  - Oxygen saturation decreased [Recovering/Resolving]
  - Rhinorrhoea [Recovering/Resolving]
  - Conjunctival hyperaemia [Recovering/Resolving]
  - N-terminal prohormone brain natriuretic peptide increased [Recovering/Resolving]
  - Lymphocyte morphology abnormal [Recovering/Resolving]
  - Drug eruption [Recovering/Resolving]
  - Generalised erythema [Recovered/Resolved]
  - Dyspnoea [Recovering/Resolving]
  - Malaise [Recovering/Resolving]
  - Enanthema [Recovered/Resolved]
  - Rash [Recovering/Resolving]

NARRATIVE: CASE EVENT DATE: 20150601
